FAERS Safety Report 9390930 (Version 1)
Quarter: 2013Q3

REPORT INFORMATION
  Report Type: Spontaneous
  Country: US (occurrence: US)
  Receive Date: 20130709
  Receipt Date: 20130709
  Transmission Date: 20140515
  Serious: No
  Sender: FDA-Public Use
  Company Number: US-PFIZER INC-2013199161

PATIENT
  Age: 72 Year
  Sex: Female
  Weight: 59 kg

DRUGS (2)
  1. LEVOXYL [Suspect]
     Indication: HYPOTHYROIDISM
     Dosage: 50 UG, 1X/DAY
  2. ZITHROMAX [Suspect]
     Indication: HYPOTHYROIDISM
     Dosage: UNK

REACTIONS (5)
  - Drug ineffective [Unknown]
  - Heart rate increased [Unknown]
  - Euphoric mood [Unknown]
  - Urticaria [Unknown]
  - Dyspnoea [Unknown]
